FAERS Safety Report 7860485-5 (Version None)
Quarter: 2011Q4

REPORT INFORMATION
  Report Type: 
  Country: None (occurrence: None)
  Receive Date: 20111027
  Receipt Date: 20111021
  Transmission Date: 20120403
  Serious: Yes (Life-Threatening, Hospitalization)
  Sender: FDA-Public Use
  Company Number: US-BAYER-2011-038410

PATIENT
  Age: 41 Year
  Sex: Female
  Weight: 127 kg

DRUGS (8)
  1. MISOPROSTOL [Concomitant]
  2. TRIAMTERENE [Concomitant]
  3. VIBRAMYCIN [Concomitant]
     Dosage: 100 MG, UNK
     Dates: start: 20070306
  4. VICODIN [Concomitant]
     Dosage: UNK
     Dates: start: 20070306
  5. CYTOTEC [Concomitant]
     Dosage: 200 U, UNK
     Dates: start: 20070306
  6. HYDROCODONE BITARTRATE [Concomitant]
  7. YAZ [Suspect]
     Dosage: UNK
     Dates: start: 20070101, end: 20070501
  8. DYAZIDE [Concomitant]

REACTIONS (4)
  - PAIN [None]
  - CEREBROVASCULAR DISORDER [None]
  - ISCHAEMIC CEREBRAL INFARCTION [None]
  - INJURY [None]
